FAERS Safety Report 11165340 (Version 2)
Quarter: 2016Q1

REPORT INFORMATION
  Report Type: Spontaneous
  Country: US (occurrence: US)
  Receive Date: 20150604
  Receipt Date: 20160301
  Transmission Date: 20160525
  Serious: No
  Sender: FDA-Public Use
  Company Number: US-BAYER-2015-300657

PATIENT
  Age: 67 Year
  Sex: Female
  Weight: 56.69 kg

DRUGS (1)
  1. MIRALAX [Suspect]
     Active Substance: POLYETHYLENE GLYCOL 3350
     Indication: CONSTIPATION
     Dosage: 1 DF, QD
     Route: 048
     Dates: start: 20150531, end: 201506

REACTIONS (6)
  - Malaise [None]
  - Influenza [Recovered/Resolved]
  - Nausea [Recovered/Resolved]
  - Vomiting [Recovered/Resolved]
  - Extra dose administered [Unknown]
  - Product contamination physical [None]

NARRATIVE: CASE EVENT DATE: 201505
